FAERS Safety Report 5869959-X (Version None)
Quarter: 2008Q3

REPORT INFORMATION
  Report Type: 
  Country: None (occurrence: None)
  Receive Date: 20080904
  Receipt Date: 20080829
  Transmission Date: 20090109
  Serious: Yes (Other)
  Sender: FDA-Public Use
  Company Number: PHEH2008US03279

PATIENT
  Sex: Female

DRUGS (1)
  1. ZELNORM [Suspect]
     Indication: INTESTINAL FUNCTIONAL DISORDER

REACTIONS (3)
  - DRUG INEFFECTIVE [None]
  - EMOTIONAL DISORDER [None]
  - INJURY [None]
